FAERS Safety Report 9432555 (Version 2)
Quarter: 2014Q1

REPORT INFORMATION
  Report Type: Report from Study
  Country: US (occurrence: US)
  Receive Date: 20130731
  Receipt Date: 20140326
  Transmission Date: 20141002
  Serious: Yes (Disabling, Other)
  Sender: FDA-Public Use
  Company Number: PHEH2013US016164

PATIENT
  Sex: Female

DRUGS (4)
  1. DIOVAN [Suspect]
     Dosage: 80 MG, UNK
  2. SIMVASTATIN [Concomitant]
     Dosage: UNK
  3. DICLOFENAC SODIUM [Concomitant]
     Dosage: UNK
  4. ASPIRIN [Concomitant]
     Dosage: UNK

REACTIONS (4)
  - Optic ischaemic neuropathy [Unknown]
  - Optic nerve injury [Unknown]
  - Visual impairment [Unknown]
  - Macular hole [Unknown]
